FAERS Safety Report 9069063 (Version 1)
Quarter: 2013Q1

REPORT INFORMATION
  Report Type: Spontaneous
  Country: US (occurrence: None)
  Receive Date: 20130213
  Receipt Date: 20130213
  Transmission Date: 20140127
  Serious: Yes (Hospitalization)
  Sender: FDA-Public Use
  Company Number: None

PATIENT
  Sex: Female
  Weight: 81 kg

DRUGS (2)
  1. PACLITAXEL (TAXOL) [Suspect]
  2. IFOSFAMIDE [Suspect]

REACTIONS (26)
  - Abdominal pain [None]
  - Nausea [None]
  - Vomiting [None]
  - Aphagia [None]
  - Infrequent bowel movements [None]
  - Small intestinal obstruction [None]
  - Pain [None]
  - Tachycardia [None]
  - Tachypnoea [None]
  - Hypertension [None]
  - Hypoxia [None]
  - Body temperature increased [None]
  - Mental status changes [None]
  - Lethargy [None]
  - Pneumonia aspiration [None]
  - Metastases to liver [None]
  - Metastases to gallbladder [None]
  - Metastases to pelvis [None]
  - Hydronephrosis [None]
  - Obstruction [None]
  - Metastasis [None]
  - Abdominal distension [None]
  - Skin disorder [None]
  - Fall [None]
  - Bacterial test positive [None]
  - General physical health deterioration [None]
